FAERS Safety Report 10102265 (Version 5)
Quarter: 2015Q1

REPORT INFORMATION
  Report Type: Report from Study
  Country: IN (occurrence: IN)
  Receive Date: 20140424
  Receipt Date: 20150324
  Transmission Date: 20150720
  Serious: Yes (Other)
  Sender: FDA-Public Use
  Company Number: IN-ROCHE-1388811

PATIENT
  Age: 37 Year
  Sex: Female
  Weight: 54 kg

DRUGS (3)
  1. ACTEMRA [Suspect]
     Active Substance: TOCILIZUMAB
     Indication: RHEUMATOID ARTHRITIS
     Route: 042
     Dates: end: 201308
  2. ACTEMRA [Suspect]
     Active Substance: TOCILIZUMAB
     Route: 042
  3. ACTEMRA [Suspect]
     Active Substance: TOCILIZUMAB
     Route: 042
     Dates: start: 20110212

REACTIONS (5)
  - Pain [Unknown]
  - Pyrexia [Unknown]
  - Drug dependence [Unknown]
  - Product quality issue [Unknown]
  - Drug ineffective [Unknown]

NARRATIVE: CASE EVENT DATE: 20150220
